FAERS Safety Report 8574401-4 (Version None)
Quarter: 2012Q3

REPORT INFORMATION
  Report Type: 
  Country: None (occurrence: None)
  Receive Date: 20120806
  Receipt Date: 20120803
  Transmission Date: 20120928
  Serious: Yes (Hospitalization)
  Sender: FDA-Public Use
  Company Number: DE-ROCHE-1082215

PATIENT
  Sex: Male
  Weight: 71 kg

DRUGS (3)
  1. MABTHERA [Suspect]
     Indication: MALIGNANT LYMPHOID NEOPLASM
     Dosage: MOST RECENT DOSE PRIOR TO SAE 17/FEB/2011
     Route: 042
     Dates: start: 20100819
  2. PANTOPRAZOLE [Concomitant]
     Indication: PRODUCT USED FOR UNKNOWN INDICATION
  3. BENDAMUSTINE [Suspect]
     Indication: MALIGNANT LYMPHOID NEOPLASM
     Dosage: MOST RECENT DOSE PRIOR TO SAE 17/FEB/2011
     Route: 042
     Dates: start: 20100820

REACTIONS (1)
  - SCIATICA [None]
